FAERS Safety Report 7628464-0 (Version None)
Quarter: 2011Q3

REPORT INFORMATION
  Report Type: 
  Country: None (occurrence: None)
  Receive Date: 20110722
  Receipt Date: 20110714
  Transmission Date: 20111222
  Serious: Yes (Hospitalization, Other)
  Sender: FDA-Public Use
  Company Number: US-US-EMD SERONO, INC.-232446J10USA

PATIENT
  Sex: Female

DRUGS (1)
  1. REBIF [Suspect]
     Indication: MULTIPLE SCLEROSIS
     Route: 058
     Dates: start: 20090713

REACTIONS (20)
  - BREAST NEOPLASM [None]
  - BONE DISORDER [None]
  - COGNITIVE DISORDER [None]
  - ASTHENIA [None]
  - PERONEAL NERVE PALSY [None]
  - BONE PAIN [None]
  - BONE NEOPLASM [None]
  - CARDIAC MURMUR [None]
  - MULTIPLE SCLEROSIS RELAPSE [None]
  - PARAESTHESIA [None]
  - INJECTION SITE ERYTHEMA [None]
  - CALCINOSIS [None]
  - PYREXIA [None]
  - INJECTION SITE HAEMATOMA [None]
  - INJECTION SITE SWELLING [None]
  - OSTEOARTHRITIS [None]
  - OEDEMA PERIPHERAL [None]
  - BALANCE DISORDER [None]
  - HYPOAESTHESIA [None]
  - CHILLS [None]
